FAERS Safety Report 6809391-5 (Version None)
Quarter: 2010Q2

REPORT INFORMATION
  Report Type: 
  Country: None (occurrence: None)
  Receive Date: 20100630
  Receipt Date: 20100621
  Transmission Date: 20101027
  Serious: Yes (Disabling)
  Sender: FDA-Public Use
  Company Number: AU-ASTRAZENECA-2010SE29324

PATIENT
  Age: 15629 Day
  Sex: Male

DRUGS (3)
  1. CRESTOR [Suspect]
     Indication: METABOLIC DISORDER
     Route: 048
     Dates: start: 20090701, end: 20100518
  2. CARTIA XT [Concomitant]
     Route: 048
     Dates: start: 20060101
  3. COENZYME Q10 [Concomitant]
     Dosage: 01 UNIT AS NECESSARY
     Route: 048
     Dates: start: 20020101

REACTIONS (1)
  - DEAFNESS NEUROSENSORY [None]
